FAERS Safety Report 7229573-0 (Version None)
Quarter: 2011Q1

REPORT INFORMATION
  Report Type: 
  Country: None (occurrence: None)
  Receive Date: 20110117
  Receipt Date: 20100826
  Transmission Date: 20110831
  Serious: Yes (Other)
  Sender: FDA-Public Use
  Company Number: US-TYCO HEALTHCARE/MALLINCKRODT-T201001870

PATIENT
  Sex: Female

DRUGS (1)
  1. OPTIRAY 350 [Suspect]
     Dosage: 100 ML, SINGLE
     Route: 042
     Dates: start: 20100826, end: 20100826

REACTIONS (2)
  - THROAT TIGHTNESS [None]
  - VULVOVAGINAL PRURITUS [None]
